FAERS Safety Report 4920334-1 (Version None)
Quarter: 2006Q1

REPORT INFORMATION
  Report Type: 
  Country: None (occurrence: None)
  Receive Date: 20060223
  Receipt Date: 20050824
  Transmission Date: 20060701
  Serious: Yes (Hospitalization)
  Sender: FDA-Public Use
  Company Number: US-MERCK-0508USA04343

PATIENT
  Age: 74 Year
  Sex: Male
  Weight: 100 kg

DRUGS (2)
  1. VIOXX [Suspect]
     Indication: PAIN
     Route: 048
     Dates: start: 20020101, end: 20030403
  2. VIOXX [Suspect]
     Indication: MONARTHRITIS
     Route: 048
     Dates: start: 20020101, end: 20030403

REACTIONS (7)
  - AORTIC VALVE STENOSIS [None]
  - ATRIAL FIBRILLATION [None]
  - BLOOD CHOLESTEROL INCREASED [None]
  - CORONARY ARTERY DISEASE [None]
  - FATIGUE [None]
  - MYOCARDIAL INFARCTION [None]
  - OEDEMA PERIPHERAL [None]
